FAERS Safety Report 9045224 (Version 1)
Quarter: 2013Q1

REPORT INFORMATION
  Report Type: Spontaneous
  Country: US (occurrence: US)
  Receive Date: 20130131
  Receipt Date: 20130131
  Transmission Date: 20140127
  Serious: Yes (Other)
  Sender: FDA-Public Use
  Company Number: US-BAYER-2013-004888

PATIENT
  Age: 42 Year
  Sex: Female

DRUGS (3)
  1. MIRENA [Suspect]
     Indication: CONTRACEPTION
     Dosage: 20 MCG/24HR, CONT
     Route: 015
     Dates: start: 2012, end: 20130104
  2. MIRENA [Suspect]
     Indication: MENORRHAGIA
  3. IRON [Concomitant]
     Indication: ANAEMIA

REACTIONS (6)
  - Haemorrhage [None]
  - Menorrhagia [None]
  - Hypomenorrhoea [None]
  - Drug ineffective [None]
  - Asthenia [None]
  - Pain [None]
